FAERS Safety Report 9518867 (Version 1)
Quarter: 2013Q1

REPORT INFORMATION
  Report Type: Spontaneous
  Country: US (occurrence: None)
  Receive Date: 20130305
  Receipt Date: 20130305
  Transmission Date: 20140127
  Serious: Yes (Other)
  Sender: FDA-Public Use
  Company Number: 163-21880-12072778

PATIENT
  Age: 60 Year
  Sex: Male
  Weight: 63.5 kg

DRUGS (3)
  1. REVLIMID (LENALIDOMIDE) (CAPSULES) [Suspect]
     Indication: PLASMA CELL MYELOMA
     Dosage: 10 MG, 28 IN 28 D, PO
     Route: 048
     Dates: start: 20101001
  2. NIFEDICAL XL (NIFEDIPINE) (UNKNOWN) [Concomitant]
  3. VITAMIN B (VITAMIN B) (UNKNOWN) [Concomitant]

REACTIONS (1)
  - Drug dose omission [None]
